FAERS Safety Report 19849922 (Version 1)
Quarter: 2021Q3

REPORT INFORMATION
  Report Type: Spontaneous
  Country: US (occurrence: US)
  Receive Date: 20210917
  Receipt Date: 20210917
  Transmission Date: 20211014
  Serious: No
  Sender: FDA-Public Use
  Company Number: US-CATALYST PHARMACEUTICALS, INC-2021CAT00269

PATIENT
  Age: 70 Year
  Sex: Female
  Weight: 54.42 kg

DRUGS (5)
  1. FIRDAPSE [Suspect]
     Active Substance: AMIFAMPRIDINE PHOSPHATE
     Dosage: 20 MG, 1X/DAY IN THE MORNING
     Route: 048
     Dates: start: 2021, end: 20210701
  2. FIRDAPSE [Suspect]
     Active Substance: AMIFAMPRIDINE PHOSPHATE
     Dosage: 15 MG, 2X/DAY (IN THE AFTERNOON AND EVENING)
     Route: 048
     Dates: start: 2021, end: 20210701
  3. FIRDAPSE [Suspect]
     Active Substance: AMIFAMPRIDINE PHOSPHATE
     Indication: MYASTHENIC SYNDROME
     Dosage: 15 MG, 3X/DAY TITRATING UP TO 60 MG DAILY (20 MG, 3X/DAY)
     Route: 048
     Dates: start: 20210522, end: 2021
  4. FAMOTIDINE. [Concomitant]
     Active Substance: FAMOTIDINE
  5. METOPROLOL. [Concomitant]
     Active Substance: METOPROLOL

REACTIONS (5)
  - Drug ineffective [Recovered/Resolved]
  - Nausea [Recovering/Resolving]
  - Physiotherapy [Not Recovered/Not Resolved]
  - Neuropathy peripheral [Recovering/Resolving]
  - Hunger [Recovering/Resolving]

NARRATIVE: CASE EVENT DATE: 2021
